FAERS Safety Report 7980003-0 (Version None)
Quarter: 2011Q4

REPORT INFORMATION
  Report Type: 
  Country: None (occurrence: None)
  Receive Date: 20111214
  Receipt Date: 20111205
  Transmission Date: 20120403
  Serious: Yes (Other)
  Sender: FDA-Public Use
  Company Number: PHEH2011US010869

PATIENT
  Sex: Female

DRUGS (1)
  1. TEKTURNA [Suspect]
     Dosage: 500/12.5 MG

REACTIONS (3)
  - CARDIAC VALVE REPLACEMENT COMPLICATION [None]
  - ATRIAL FIBRILLATION [None]
  - HYPERTENSION [None]
